FAERS Safety Report 4404328-0 (Version None)
Quarter: 2004Q3

REPORT INFORMATION
  Report Type: 
  Country: None (occurrence: None)
  Receive Date: 20040721
  Receipt Date: 20040721
  Transmission Date: 20050211
  Serious: Yes (Hospitalization)
  Sender: FDA-Public Use
  Company Number: None

PATIENT
  Age: 56 Year

DRUGS (11)
  1. WARFARIN SODIUM [Suspect]
     Indication: DEEP VEIN THROMBOSIS
     Dosage: 10 MG QD CHRONIC
  2. SERTRALINE HCL [Suspect]
     Indication: DEPRESSION
     Dosage: 75 MG QD
  3. COMBIVENT [Concomitant]
  4. COREG [Concomitant]
  5. NITROGLYCERIN [Concomitant]
  6. ISORDIL [Concomitant]
  7. LASIX [Concomitant]
  8. CAPTOPRIL [Concomitant]
  9. ALLOPURINOL [Concomitant]
  10. DIGOXIN [Concomitant]
  11. COLCHICINE [Concomitant]

REACTIONS (1)
  - INTERNATIONAL NORMALISED RATIO INCREASED [None]
